FAERS Safety Report 24972372 (Version 15)
Quarter: 2025Q3

REPORT INFORMATION
  Report Type: Spontaneous
  Country: US (occurrence: US)
  Receive Date: 20250215
  Receipt Date: 20250912
  Transmission Date: 20251020
  Serious: Yes (Other)
  Sender: UNITED THERAPEUTICS
  Company Number: US-UNITED THERAPEUTICS-UNT-2025-005329

PATIENT
  Sex: Female
  Weight: 97.506 kg

DRUGS (27)
  1. TYVASO [Suspect]
     Active Substance: TREPROSTINIL
     Indication: Pulmonary arterial hypertension
     Dosage: 6 ?G, QID
  2. TYVASO [Suspect]
     Active Substance: TREPROSTINIL
     Dosage: 18 ?G, QD
     Dates: end: 202504
  3. TYVASO [Suspect]
     Active Substance: TREPROSTINIL
     Dosage: 18 ?G, QID
     Dates: start: 202504, end: 202504
  4. TYVASO [Suspect]
     Active Substance: TREPROSTINIL
     Dosage: 30 ?G, QID
     Dates: start: 202504, end: 202504
  5. TYVASO [Suspect]
     Active Substance: TREPROSTINIL
     Dosage: 36 ?G, QID
     Dates: start: 202504, end: 2025
  6. TYVASO [Suspect]
     Active Substance: TREPROSTINIL
     Dosage: 48 ?G, QID
     Dates: start: 2025, end: 2025
  7. TYVASO [Suspect]
     Active Substance: TREPROSTINIL
     Dosage: 60 ?G, QID
     Dates: start: 2025, end: 2025
  8. TYVASO [Suspect]
     Active Substance: TREPROSTINIL
     Dosage: 66 ?G, QID
     Dates: start: 2025, end: 2025
  9. TYVASO [Suspect]
     Active Substance: TREPROSTINIL
     Dosage: 66 ?G, TID
     Dates: start: 2025, end: 2025
  10. TYVASO [Suspect]
     Active Substance: TREPROSTINIL
     Dates: start: 20240626, end: 20250807
  11. TYVASO DPI [Suspect]
     Active Substance: TREPROSTINIL
     Indication: Pulmonary arterial hypertension
     Dosage: 64 ?G, QID
     Dates: start: 20250807
  12. TYVASO DPI [Suspect]
     Active Substance: TREPROSTINIL
     Indication: Pulmonary arterial hypertension
  13. OMEPRAZOLE [Concomitant]
     Active Substance: OMEPRAZOLE
     Indication: Product used for unknown indication
  14. BREO ELLIPTA [Concomitant]
     Active Substance: FLUTICASONE FUROATE\VILANTEROL TRIFENATATE
     Indication: Product used for unknown indication
  15. ADEMPAS [Concomitant]
     Active Substance: RIOCIGUAT
     Indication: Product used for unknown indication
  16. LOSARTAN POTASSIUM [Concomitant]
     Active Substance: LOSARTAN POTASSIUM
     Indication: Product used for unknown indication
  17. ELIQUIS [Concomitant]
     Active Substance: APIXABAN
     Indication: Product used for unknown indication
  18. PREDNISONE [Concomitant]
     Active Substance: PREDNISONE
     Indication: Product used for unknown indication
  19. OXYGEN [Concomitant]
     Active Substance: OXYGEN
     Indication: Product used for unknown indication
  20. HYDROCHLOROTHIAZIDE [Concomitant]
     Active Substance: HYDROCHLOROTHIAZIDE
     Indication: Product used for unknown indication
  21. SPIRONOLACTONE [Concomitant]
     Active Substance: SPIRONOLACTONE
     Indication: Product used for unknown indication
  22. LASIX [Concomitant]
     Active Substance: FUROSEMIDE
     Indication: Product used for unknown indication
  23. IMURAN [Concomitant]
     Active Substance: AZATHIOPRINE
     Indication: Product used for unknown indication
  24. RITUXAN [Concomitant]
     Active Substance: RITUXIMAB
     Indication: Product used for unknown indication
  25. PROAIR RESPICLICK [Concomitant]
     Active Substance: ALBUTEROL SULFATE
     Indication: Product used for unknown indication
  26. FERROUS SULFATE [Concomitant]
     Active Substance: FERROUS SULFATE
     Indication: Product used for unknown indication
  27. HYDRALAZINE HCL [Concomitant]
     Active Substance: HYDRALAZINE HYDROCHLORIDE
     Indication: Product used for unknown indication

REACTIONS (17)
  - Intraductal proliferative breast lesion [Not Recovered/Not Resolved]
  - Nasopharyngitis [Not Recovered/Not Resolved]
  - Seasonal allergy [Not Recovered/Not Resolved]
  - Cough [Not Recovered/Not Resolved]
  - Epistaxis [Unknown]
  - Productive cough [Unknown]
  - Dizziness [Unknown]
  - Ear pain [Unknown]
  - Joint swelling [Not Recovered/Not Resolved]
  - Crepitations [Not Recovered/Not Resolved]
  - Breath sounds abnormal [Not Recovered/Not Resolved]
  - Oedema peripheral [Recovering/Resolving]
  - Weight increased [Unknown]
  - Malaise [Unknown]
  - Memory impairment [Unknown]
  - Inappropriate schedule of product administration [Unknown]
  - Multiple use of single-use product [Unknown]

NARRATIVE: CASE EVENT DATE: 20240101
